FAERS Safety Report 21595830 (Version 6)
Quarter: 2023Q2

REPORT INFORMATION
  Report Type: Report from Study
  Country: US (occurrence: US)
  Receive Date: 20221115
  Receipt Date: 20230411
  Transmission Date: 20230722
  Serious: No
  Sender: FDA-Public Use
  Company Number: US-002147023-NVSC2022US256907

PATIENT
  Sex: Male

DRUGS (2)
  1. ENTRESTO [Suspect]
     Active Substance: SACUBITRIL\VALSARTAN
     Indication: Product used for unknown indication
     Dosage: 1 DOSAGE FORM, BID (24/26 MG)
     Route: 048
  2. PERCOCET [Suspect]
     Active Substance: ACETAMINOPHEN\OXYCODONE HYDROCHLORIDE
     Indication: Product used for unknown indication
     Dosage: UNK
     Route: 065

REACTIONS (10)
  - Decreased activity [Unknown]
  - Memory impairment [Unknown]
  - Arthralgia [Unknown]
  - Arthritis [Unknown]
  - Apathy [Unknown]
  - Hypokinesia [Unknown]
  - Pain [Unknown]
  - Quality of life decreased [Unknown]
  - Depression [Unknown]
  - Fatigue [Unknown]
